FAERS Safety Report 15334146 (Version 1)
Quarter: 2018Q3

REPORT INFORMATION
  Report Type: Report from Study
  Country: BR (occurrence: BR)
  Receive Date: 20180830
  Receipt Date: 20180830
  Transmission Date: 20181010
  Serious: Yes (Other)
  Sender: FDA-Public Use
  Company Number: BR-SA-2018SA238203

PATIENT
  Age: 66 Year
  Sex: Male
  Weight: 120 kg

DRUGS (2)
  1. AGALSIDASE BETA [Suspect]
     Active Substance: AGALSIDASE BETA
     Indication: FABRY^S DISEASE
     Dosage: 2 AND 3 VIALS, QOW
     Route: 041
     Dates: start: 20170803
  2. DOLANTINA [Concomitant]
     Active Substance: MEPERIDINE HYDROCHLORIDE
     Indication: CARDIAC DISORDER

REACTIONS (2)
  - Shock [Recovering/Resolving]
  - Erythema [Recovering/Resolving]
